FAERS Safety Report 6925035-6 (Version None)
Quarter: 2010Q3

REPORT INFORMATION
  Report Type: 
  Country: None (occurrence: None)
  Receive Date: 20100816
  Receipt Date: 20100803
  Transmission Date: 20110219
  Serious: Yes (Hospitalization)
  Sender: FDA-Public Use
  Company Number: DE-SANOFI-AVENTIS-2010SA046275

PATIENT
  Age: 61 Year
  Sex: Female
  Weight: 55 kg

DRUGS (8)
  1. AFLIBERCEPT [Suspect]
     Route: 042
     Dates: start: 20100211, end: 20100211
  2. AFLIBERCEPT [Suspect]
     Route: 042
     Dates: start: 20100421, end: 20100421
  3. OXALIPLATIN [Suspect]
     Route: 042
     Dates: start: 20100211, end: 20100211
  4. OXALIPLATIN [Suspect]
     Route: 042
     Dates: start: 20100421, end: 20100421
  5. FLUOROURACIL [Suspect]
     Route: 042
     Dates: start: 20100211, end: 20100211
  6. FLUOROURACIL [Suspect]
     Route: 042
     Dates: start: 20100421, end: 20100421
  7. LEUCOVORIN CALCIUM [Suspect]
     Route: 042
     Dates: start: 20100211, end: 20100211
  8. LEUCOVORIN CALCIUM [Suspect]
     Route: 042
     Dates: start: 20100421, end: 20100421

REACTIONS (1)
  - LYMPHORRHOEA [None]
